FAERS Safety Report 9630195 (Version 2)
Quarter: 2013Q4

REPORT INFORMATION
  Report Type: Spontaneous
  Country: IE (occurrence: IE)
  Receive Date: 20131017
  Receipt Date: 20131119
  Transmission Date: 20140711
  Serious: Yes (Other)
  Sender: FDA-Public Use
  Company Number: IE-ACTAVIS-2013-18832

PATIENT
  Age: 70 Year
  Sex: Male
  Weight: 58 kg

DRUGS (11)
  1. DOCETAXEL ACTAVIS [Suspect]
     Indication: GASTROOESOPHAGEAL CANCER
     Dosage: 60 MG X 6; 64 MG X 10
     Route: 042
     Dates: start: 20130225
  2. ASPIRIN [Concomitant]
     Indication: MYOCARDIAL ISCHAEMIA
     Dosage: UNK, UNK
     Route: 065
  3. GLUCOPHAGE [Concomitant]
     Indication: TYPE 2 DIABETES MELLITUS
     Dosage: UNK, UNK
     Route: 065
  4. DIAMICRON [Concomitant]
     Indication: TYPE 2 DIABETES MELLITUS
     Dosage: UNK, UNK
     Route: 065
  5. IMDUR [Concomitant]
     Indication: MYOCARDIAL ISCHAEMIA
     Dosage: UNK, UNK
     Route: 065
  6. LIPITOR [Concomitant]
     Indication: MYOCARDIAL ISCHAEMIA
     Dosage: UNK, UNK
     Route: 065
  7. LOSEC                              /00661201/ [Concomitant]
     Indication: PRODUCT USED FOR UNKNOWN INDICATION
     Dosage: UNK, UNK
     Route: 065
  8. CARDICOR [Concomitant]
     Indication: MYOCARDIAL ISCHAEMIA
     Dosage: UNK, UNK
     Route: 065
  9. JANUVIA [Concomitant]
     Indication: TYPE 2 DIABETES MELLITUS
     Dosage: UNK, UNK
     Route: 065
  10. RANEXA [Concomitant]
     Indication: ANGINA PECTORIS
     Dosage: UNK, UNK
     Route: 065
  11. NICORANDIL [Concomitant]
     Indication: ANGINA PECTORIS
     Dosage: UNK, UNK
     Route: 065

REACTIONS (3)
  - Onycholysis [Not Recovered/Not Resolved]
  - Onychomadesis [Not Recovered/Not Resolved]
  - Hypoaesthesia [Not Recovered/Not Resolved]
